FAERS Safety Report 20351614 (Version 2)
Quarter: 2022Q1

REPORT INFORMATION
  Report Type: Spontaneous
  Country: US (occurrence: US)
  Receive Date: 20220119
  Receipt Date: 20220323
  Transmission Date: 20220423
  Serious: No
  Sender: FDA-Public Use
  Company Number: US-PFIZER INC-202200010124

PATIENT
  Age: 81 Year
  Sex: Female
  Weight: 89.81 kg

DRUGS (1)
  1. CLINDAMYCIN PHOSPHATE [Suspect]
     Active Substance: CLINDAMYCIN PHOSPHATE
     Dosage: UNK

REACTIONS (3)
  - Hypoacusis [Unknown]
  - Device issue [Unknown]
  - Product dose omission issue [Unknown]
